FAERS Safety Report 25060235 (Version 1)
Quarter: 2025Q1

REPORT INFORMATION
  Report Type: Spontaneous
  Country: JP (occurrence: JP)
  Receive Date: 20250310
  Receipt Date: 20250310
  Transmission Date: 20250409
  Serious: Yes (Hospitalization)
  Sender: JOHNSON AND JOHNSON
  Company Number: JP-JNJFOC-20250263830

PATIENT
  Age: 44 Year
  Sex: Female

DRUGS (3)
  1. EPOPROSTENOL SODIUM [Suspect]
     Active Substance: EPOPROSTENOL SODIUM
     Indication: Heritable pulmonary arterial hypertension
     Route: 042
  2. MACITENTAN [Concomitant]
     Active Substance: MACITENTAN
  3. SILDENAFIL [Concomitant]
     Active Substance: SILDENAFIL

REACTIONS (4)
  - Gastric cancer [Recovered/Resolved]
  - Gastrointestinal dysplasia [Recovered/Resolved]
  - Gastric mucosal hypertrophy [Recovered/Resolved]
  - Gastric neoplasm [Recovered/Resolved]
